FAERS Safety Report 8807780 (Version 2)
Quarter: 2016Q3

REPORT INFORMATION
  Report Type: Report from Study
  Country: FR (occurrence: FR)
  Receive Date: 20120925
  Receipt Date: 20160801
  Transmission Date: 20161109
  Serious: Yes (Hospitalization)
  Sender: FDA-Public Use
  Company Number: FR-ROCHE-1128759

PATIENT
  Age: 53 Year
  Sex: Female
  Weight: 66 kg

DRUGS (9)
  1. TRASTUZUMAB [Suspect]
     Active Substance: TRASTUZUMAB
     Dosage: MAITANANCE DOSE, DATE OF LAST DRUG TAKEN PRIOR TO SAE:17/AUG/2012
     Route: 042
  2. SOLUPRED (FRANCE) [Concomitant]
     Active Substance: PREDNISOLONE
     Route: 065
     Dates: start: 20120708, end: 201208
  3. PLACEBO [Suspect]
     Active Substance: UNSPECIFIED INGREDIENT
     Indication: HER-2 POSITIVE BREAST CANCER
     Dosage: LOADING DOSE
     Route: 042
     Dates: start: 20120709
  4. DOCETAXEL. [Suspect]
     Active Substance: DOCETAXEL
     Indication: HER-2 POSITIVE BREAST CANCER
     Dosage: DATE OF LAST DRUG TAKEN PRIOR TO SAE:17/AUG/2012
     Route: 042
     Dates: start: 20120709
  5. PLACEBO [Suspect]
     Active Substance: UNSPECIFIED INGREDIENT
     Dosage: MAINTAINANCE DOSE, DATE OF LAST DOSE PRIOR TO ONSET OF AE:17/AUG/2012
     Route: 042
  6. IBUPROFENE [Concomitant]
     Active Substance: IBUPROFEN
     Route: 065
     Dates: start: 201205
  7. VERSATIS [Concomitant]
     Active Substance: LIDOCAINE
     Route: 065
     Dates: start: 2009
  8. TRASTUZUMAB [Suspect]
     Active Substance: TRASTUZUMAB
     Indication: HER-2 POSITIVE BREAST CANCER
     Dosage: LOADING DOSE, CYCLE 1
     Route: 042
     Dates: start: 20120709
  9. DEBRIDAT [Concomitant]
     Active Substance: TRIMEBUTINE MALEATE
     Route: 065
     Dates: start: 201208

REACTIONS (1)
  - Febrile bone marrow aplasia [Recovered/Resolved]

NARRATIVE: CASE EVENT DATE: 20120827
